FAERS Safety Report 8843725 (Version 1)
Quarter: 2012Q4

REPORT INFORMATION
  Report Type: 
  Country: GB (occurrence: GB)
  Receive Date: 20121016
  Receipt Date: 20121016
  Transmission Date: 20130627
  Serious: Yes (Disabling)
  Sender: FDA-Public Use
  Company Number: GB-009507513-1210GBR001683

PATIENT
  Age: 70 Year
  Sex: Female
  Weight: 95.4 kg

DRUGS (15)
  1. SYCREST [Suspect]
     Indication: MAJOR DEPRESSION
     Dosage: 5 mg, bid
     Route: 048
     Dates: start: 20120817, end: 20120912
  2. SYCREST [Suspect]
     Dosage: UNK
  3. BISOPROLOL [Concomitant]
     Dosage: 5 mg, qd
     Route: 048
  4. CLOMIPRAMINE HYDROCHLORIDE [Concomitant]
     Dosage: 75 mg, bid
     Route: 048
  5. FORTISIP [Concomitant]
     Dosage: 1 DF, qd
     Route: 048
  6. FYBOGEL [Concomitant]
     Dosage: 1 DF, bid
     Route: 048
  7. LAMOTRIGINE [Concomitant]
     Dosage: 25 mg, qd
     Route: 048
  8. LORAZEPAM [Concomitant]
     Dosage: 500 Microgram, prn
     Route: 048
  9. LORAZEPAM [Concomitant]
     Dosage: UNK
  10. PREGABALIN [Concomitant]
     Dosage: 25 mg, qd
     Route: 048
  11. PREMARIN [Concomitant]
     Dosage: 625 Microgram, qd
     Route: 048
  12. PROMETHAZINE [Concomitant]
     Dosage: 10 mg, prn
     Route: 048
  13. RAMIPRIL [Concomitant]
     Dosage: 2.5 mg, qd
     Route: 048
  14. SPIRONOLACTONE [Concomitant]
     Dosage: 25 mg, qd
     Route: 048
  15. ZOPICLONE [Concomitant]
     Dosage: 3.75 mg, qd
     Route: 048

REACTIONS (1)
  - Mania [Recovered/Resolved]
